FAERS Safety Report 5434741-4 (Version None)
Quarter: 2007Q3

REPORT INFORMATION
  Report Type: 
  Country: None (occurrence: None)
  Receive Date: 20070831
  Receipt Date: 20070824
  Transmission Date: 20080115
  Serious: Yes (Other)
  Sender: FDA-Public Use
  Company Number: HQWYE662030JUL04

PATIENT
  Sex: Female
  Weight: 56.75 kg

DRUGS (4)
  1. PREMPRO [Suspect]
  2. PROVERA [Suspect]
  3. CONJUGATED ESTROGENS [Suspect]
  4. PREMARIN [Suspect]

REACTIONS (1)
  - BREAST CANCER RECURRENT [None]
